FAERS Safety Report 14426491 (Version 6)
Quarter: 2018Q3

REPORT INFORMATION
  Report Type: Spontaneous
  Country: US (occurrence: US)
  Receive Date: 20180123
  Receipt Date: 20180807
  Transmission Date: 20181010
  Serious: Yes (Hospitalization, Disabling, Other)
  Sender: FDA-Public Use
  Company Number: US-ROCHE-2046614

PATIENT
  Age: 47 Year
  Sex: Female
  Weight: 70.37 kg

DRUGS (10)
  1. OCREVUS [Suspect]
     Active Substance: OCRELIZUMAB
     Dosage: FULL DOSE OF OCRELIZUMAB
     Route: 042
     Dates: start: 20171113
  2. ZYRTEC [Concomitant]
     Active Substance: CETIRIZINE HYDROCHLORIDE
     Indication: HYPERSENSITIVITY
     Route: 048
  3. OCREVUS [Suspect]
     Active Substance: OCRELIZUMAB
     Indication: MULTIPLE SCLEROSIS
     Dosage: FIRST HALF INFUSION?SHE RECEIVED TWO HALF DOSES AND ONE FULL DOSE OF OCRELIZUMAB
     Route: 042
     Dates: start: 20170510
  4. CBD OIL [Concomitant]
     Active Substance: CANNABIDIOL
  5. BENADRYL [Concomitant]
     Active Substance: DIPHENHYDRAMINE HYDROCHLORIDE
  6. FLONASE [Concomitant]
     Active Substance: FLUTICASONE PROPIONATE
     Indication: HYPERSENSITIVITY
     Dosage: 1 TO 2 SPRAY
     Route: 045
  7. MODAFINIL. [Concomitant]
     Active Substance: MODAFINIL
     Indication: MULTIPLE SCLEROSIS
     Dosage: FOR MORE THAT 2 YEARS
     Route: 048
  8. NALTREXONE [Concomitant]
     Active Substance: NALTREXONE
     Indication: MULTIPLE SCLEROSIS
     Dosage: FOR MORE THAN 1 YEAR
     Route: 048
  9. DRONABINOL. [Concomitant]
     Active Substance: DRONABINOL
  10. OCREVUS [Suspect]
     Active Substance: OCRELIZUMAB
     Dosage: 300 MG TWICE THEN 600 MG EVERY SIX MONTHS
     Route: 042
     Dates: start: 20170426

REACTIONS (17)
  - Throat tightness [Recovered/Resolved]
  - Oropharyngeal pain [Not Recovered/Not Resolved]
  - Odynophagia [Unknown]
  - Dyspnoea [Recovered/Resolved]
  - Product label issue [Unknown]
  - Throat irritation [Unknown]
  - Infusion related reaction [Unknown]
  - Oropharyngeal pain [Recovered/Resolved]
  - Pain [Recovered/Resolved]
  - Glossopharyngeal neuralgia [Not Recovered/Not Resolved]
  - Dysphagia [Unknown]
  - Dysphonia [Recovered/Resolved]
  - Oropharyngeal pain [Not Recovered/Not Resolved]
  - Vocal cord paresis [Not Recovered/Not Resolved]
  - Circumstance or information capable of leading to medication error [Unknown]
  - Subcutaneous abscess [Unknown]
  - Vocal cord paralysis [Not Recovered/Not Resolved]

NARRATIVE: CASE EVENT DATE: 20170426
